FAERS Safety Report 20568591 (Version 1)
Quarter: 2022Q1

REPORT INFORMATION
  Report Type: Spontaneous
  Country: CN (occurrence: CN)
  Receive Date: 20220308
  Receipt Date: 20220308
  Transmission Date: 20220423
  Serious: Yes (Other)
  Sender: FDA-Public Use
  Company Number: CN-PFIZER INC-202200342568

PATIENT
  Age: 84 Year
  Sex: Male
  Weight: 98 kg

DRUGS (2)
  1. CYTARABINE [Suspect]
     Active Substance: CYTARABINE
     Indication: Acute leukaemia
     Dosage: 100 MG
     Dates: start: 20220127, end: 20220204
  2. SODIUM CHLORIDE [Concomitant]
     Active Substance: SODIUM CHLORIDE
     Indication: Vehicle solution use
     Dosage: 192 ML
     Dates: start: 20220127, end: 20220204

REACTIONS (3)
  - Myelosuppression [Recovering/Resolving]
  - Oedema peripheral [Unknown]
  - Cough [Unknown]

NARRATIVE: CASE EVENT DATE: 20220129
